FAERS Safety Report 10468447 (Version 2)
Quarter: 2014Q3

REPORT INFORMATION
  Report Type: Spontaneous
  Country: US (occurrence: US)
  Receive Date: 20140922
  Receipt Date: 20140922
  Transmission Date: 20150326
  Serious: No
  Sender: FDA-Public Use
  Company Number: US-ALLERGAN-1313708US

PATIENT
  Sex: Female

DRUGS (3)
  1. NASAL SPRAY [Concomitant]
     Active Substance: UNSPECIFIED INGREDIENT
     Indication: PRODUCT USED FOR UNKNOWN INDICATION
  2. TIMOLAR [Concomitant]
     Indication: PRODUCT USED FOR UNKNOWN INDICATION
     Dosage: 2 GTT, QAM
     Route: 047
  3. LASTACAFT [Suspect]
     Active Substance: ALCAFTADINE
     Indication: DRY EYE
     Route: 047

REACTIONS (2)
  - Conjunctivitis [Unknown]
  - Off label use [Unknown]
